FAERS Safety Report 8273263-2 (Version None)
Quarter: 2012Q2

REPORT INFORMATION
  Report Type: 
  Country: None (occurrence: None)
  Receive Date: 20120411
  Receipt Date: 20120405
  Transmission Date: 20120825
  Serious: Yes (Other)
  Sender: FDA-Public Use
  Company Number: US-PFIZER INC-2012086366

PATIENT
  Sex: Female
  Weight: 52.608 kg

DRUGS (12)
  1. CYMBALTA [Suspect]
     Indication: DEPRESSION
     Dosage: 60 MG, 2X/DAY
  2. LYRICA [Suspect]
     Dosage: 175 MG,
     Route: 048
  3. KLONOPIN [Concomitant]
     Indication: RESTLESS LEGS SYNDROME
  4. LYRICA [Suspect]
     Dosage: 100 MG, DAILY
     Route: 048
     Dates: end: 20120301
  5. TRAZODONE [Concomitant]
     Indication: RESTLESS LEGS SYNDROME
  6. PREDNISONE TAB [Suspect]
     Indication: BLISTER
     Dosage: UNK
     Dates: end: 20120301
  7. LYRICA [Suspect]
     Indication: PAIN
     Dosage: 50 MG, DAILY
     Route: 048
     Dates: start: 20120127
  8. CYMBALTA [Suspect]
     Indication: PAIN
  9. KLONOPIN [Concomitant]
     Indication: MYOCLONUS
     Dosage: 2 MG, DAILY
  10. TRAZODONE [Concomitant]
     Indication: MYOCLONUS
     Dosage: 50 MG, DAILY
  11. DESOXIMETASONE [Suspect]
     Indication: BLISTER
     Dosage: 0.05%
     Route: 061
     Dates: end: 20120301
  12. MOMETASONE FUROATE [Suspect]
     Indication: BLISTER
     Dosage: 0.1%
     Route: 061

REACTIONS (4)
  - DEPRESSION [None]
  - PRURITUS [None]
  - DRUG INEFFECTIVE [None]
  - BLISTER [None]
